FAERS Safety Report 10626854 (Version 1)
Quarter: 2014Q4

REPORT INFORMATION
  Report Type: Spontaneous
  Country: CA (occurrence: CA)
  Receive Date: 20141204
  Receipt Date: 20141204
  Transmission Date: 20150529
  Serious: Yes (Hospitalization)
  Sender: FDA-Public Use
  Company Number: CA-TEVA-526170USA

PATIENT
  Age: 14 Year
  Sex: Male
  Weight: 64 kg

DRUGS (25)
  1. BECLOMETHASONE [Concomitant]
     Active Substance: BECLOMETHASONE
  2. DIPHENHYDRAMINE [Concomitant]
     Active Substance: DIPHENHYDRAMINE
  3. LEUCOVORIN CALCIUM INJECTION USP [Concomitant]
     Dosage: LIQUID INTRAVENOUS
  4. IFOSFAMIDE FOR INJECTION, USP [Concomitant]
     Dosage: POWDER FOR SOLUTION INTRAVENOUS
  5. LACTULOSE. [Concomitant]
     Active Substance: LACTULOSE
  6. MORPHINE SULFATE INJECTION USP [Concomitant]
     Dosage: LIQUID INTRAMUSCULAR
  7. ZINECARD [Concomitant]
     Active Substance: DEXRAZOXANE HYDROCHLORIDE
     Dosage: POWDER FOR SOLUTION INTRAVENOUS
  8. METHOTREXATE [Suspect]
     Active Substance: METHOTREXATE
     Indication: PRODUCT USED FOR UNKNOWN INDICATION
     Dosage: FREQUENCY CYCLICAL
     Route: 042
  9. CISPLATIN INJECTION [Concomitant]
     Active Substance: CISPLATIN
     Dosage: SOLUTION INTRAVENOUS
  10. DIMENHYDRINATE. [Concomitant]
     Active Substance: DIMENHYDRINATE
     Dosage: LIQUID INTRAVENOUS
  11. DOCUSATE SODIUM. [Concomitant]
     Active Substance: DOCUSATE SODIUM
  12. GABAPENTIN. [Concomitant]
     Active Substance: GABAPENTIN
  13. LORAZEPAM. [Concomitant]
     Active Substance: LORAZEPAM
  14. ETOPOSIDE INJECTION, USP [Concomitant]
     Active Substance: ETOPOSIDE
  15. NYSTATIN. [Concomitant]
     Active Substance: NYSTATIN
  16. POLYETHYLENE GLYCOL [Concomitant]
     Active Substance: POLYETHYLENE GLYCOLS
  17. EMEND [Concomitant]
     Active Substance: APREPITANT
  18. SALBUTAMOL [Concomitant]
     Active Substance: ALBUTEROL
     Dosage: INHALATION
  19. ACETAMINOPHEN. [Concomitant]
     Active Substance: ACETAMINOPHEN
  20. DOXORUBICIN HYDROCHLORIDE INJECTION [Concomitant]
     Active Substance: DOXORUBICIN HYDROCHLORIDE
  21. FUROSEMIDE INJ USP [Concomitant]
     Dosage: LIQUID INTRAMUSCULAR
  22. HYDROMORPHONE [Concomitant]
     Active Substance: HYDROMORPHONE
  23. MESNA FOR INJECTION [Concomitant]
     Active Substance: MESNA
     Dosage: SOLUTION INTRAVENOUS
  24. METOCLOPRAMIDE HYDROCHLORIDE INJECTION [Concomitant]
     Dosage: LIQUID INTRAMUSCULAR
  25. ONDANSETRON [Concomitant]
     Active Substance: ONDANSETRON

REACTIONS (7)
  - Drug hypersensitivity [Unknown]
  - Erythema [Unknown]
  - Face oedema [Unknown]
  - Rash [Unknown]
  - Rash papular [Unknown]
  - Pruritus [Unknown]
  - Injection related reaction [Unknown]
